FAERS Safety Report 6030531-2 (Version None)
Quarter: 2009Q1

REPORT INFORMATION
  Report Type: 
  Country: None (occurrence: None)
  Receive Date: 20090107
  Receipt Date: 20081231
  Transmission Date: 20090719
  Serious: Yes (Death, Life-Threatening, Hospitalization)
  Sender: FDA-Public Use
  Company Number: DE-WYE-G02784608

PATIENT
  Sex: Female
  Weight: 80 kg

DRUGS (11)
  1. TAVOR [Suspect]
     Dosage: 0.5-1MG 1 TIME PER DAY, TOTAL AMOUNT 4.5 MG
     Route: 060
     Dates: start: 20080522, end: 20080527
  2. ZOFRAN [Suspect]
     Route: 060
     Dates: start: 20080523, end: 20080523
  3. ZOFRAN [Suspect]
     Route: 060
     Dates: start: 20080526, end: 20080528
  4. METOPROLOL [Concomitant]
     Route: 048
  5. ENOXAPARIN SODIUM [Concomitant]
     Route: 058
  6. PLAVIX [Concomitant]
     Route: 048
  7. CALCILAC [Concomitant]
     Route: 048
  8. NULYTELY [Concomitant]
     Route: 048
  9. ACTRAPHANE HM [Concomitant]
     Dosage: VARYING
     Route: 058
  10. CORDAREX [Suspect]
     Route: 048
     Dates: end: 20080528
  11. NEXIUM [Concomitant]
     Route: 048

REACTIONS (4)
  - HEPATITIS ACUTE [None]
  - MULTI-ORGAN FAILURE [None]
  - PANCREATITIS ACUTE [None]
  - SHOCK [None]
